FAERS Safety Report 7339720-8 (Version None)
Quarter: 2011Q1

REPORT INFORMATION
  Report Type: 
  Country: None (occurrence: None)
  Receive Date: 20110303
  Receipt Date: 20110303
  Transmission Date: 20110831
  Serious: Yes (Other)
  Sender: FDA-Public Use
  Company Number: None

PATIENT
  Age: 52 Year
  Sex: Female
  Weight: 60.9 kg

DRUGS (1)
  1. BUPROPION HCL [Suspect]
     Indication: BIPOLAR DISORDER
     Dosage: 300MG. QD PO
     Route: 048
     Dates: start: 20070501

REACTIONS (5)
  - DYSPHAGIA [None]
  - PRODUCT SIZE ISSUE [None]
  - FOREIGN BODY [None]
  - CHOKING [None]
  - PRODUCT SUBSTITUTION ISSUE [None]
